FAERS Safety Report 7959851 (Version 2)
Quarter: 2013Q1

REPORT INFORMATION
  Report Type: Spontaneous
  Country: US (occurrence: US)
  Receive Date: 20110525
  Receipt Date: 20120418
  Transmission Date: 20140127
  Serious: Yes (Hospitalization)
  Sender: FDA-Public Use
  Company Number: None

PATIENT
  Sex: Male
  Weight: 63.95 kg

DRUGS (3)
  1. KAPVAY [Suspect]
     Indication: ATTENTION DEFICIT/HYPERACTIVITY DISORDER
     Dosage: 0.1 MG, EVERY NIGHT
     Route: 048
     Dates: start: 20110412, end: 20110512
  2. VYVANSE [Concomitant]
  3. RISPERDAL [Concomitant]

REACTIONS (1)
  - Substance abuse [Unknown]
